FAERS Safety Report 6586009-0 (Version None)
Quarter: 2010Q1

REPORT INFORMATION
  Report Type: 
  Country: None (occurrence: None)
  Receive Date: 20100216
  Receipt Date: 20100216
  Transmission Date: 20100710
  Serious: No
  Sender: FDA-Public Use
  Company Number: None

PATIENT
  Age: 68 Year
  Sex: Male
  Weight: 94.8 kg

DRUGS (2)
  1. ROSUVASTATIN [Suspect]
     Indication: HYPERLIPIDAEMIA
     Dosage: 5 MG EVERY DAY PO
     Route: 048
     Dates: start: 20090116, end: 20100202
  2. ROSUVASTATIN [Suspect]
     Indication: HYPERTENSION
     Dosage: 5 MG EVERY DAY PO
     Route: 048
     Dates: start: 20090116, end: 20100202

REACTIONS (8)
  - ANAEMIA [None]
  - BACK PAIN [None]
  - DIABETES MELLITUS [None]
  - HEPATIC ENZYME INCREASED [None]
  - HYPERLIPIDAEMIA [None]
  - HYPERTENSION [None]
  - MYALGIA [None]
  - OSTEOARTHRITIS [None]
